FAERS Safety Report 17753576 (Version 1)
Quarter: 2020Q2

REPORT INFORMATION
  Report Type: Spontaneous
  Country: FR (occurrence: FR)
  Receive Date: 20200507
  Receipt Date: 20200507
  Transmission Date: 20200714
  Serious: Yes (Other)
  Sender: FDA-Public Use
  Company Number: FR-AUROBINDO-AUR-APL-2020-021647

PATIENT
  Age: 61 Year
  Sex: Female

DRUGS (2)
  1. GENTAMICINE [Concomitant]
     Active Substance: GENTAMICIN
     Indication: SURGERY
     Dosage: UNK
     Route: 048
     Dates: start: 201902, end: 201902
  2. METRONIDAZOLE. [Suspect]
     Active Substance: METRONIDAZOLE
     Indication: SURGERY
     Dosage: UNK
     Route: 048
     Dates: start: 201902, end: 201902

REACTIONS (2)
  - Angioedema [Recovered/Resolved]
  - Urticaria [Recovered/Resolved]

NARRATIVE: CASE EVENT DATE: 201902
